FAERS Safety Report 9626700 (Version 3)
Quarter: 2013Q4

REPORT INFORMATION
  Report Type: Report from Study
  Country: DE (occurrence: DE)
  Receive Date: 20131016
  Receipt Date: 20131226
  Transmission Date: 20140711
  Serious: Yes (Hospitalization, Disabling, Other)
  Sender: FDA-Public Use
  Company Number: DE-ABBVIE-13P-062-1156362-00

PATIENT
  Age: 58 Year
  Sex: Female
  Weight: 87 kg

DRUGS (10)
  1. HUMIRA [Suspect]
     Indication: CROHN^S DISEASE
     Dosage: 160 MG FIRST WEEK, 80 MG SECOND WEEK,
     Route: 058
     Dates: start: 20130522, end: 201307
  2. CORTISON [Concomitant]
     Indication: PRODUCT USED FOR UNKNOWN INDICATION
  3. DIGITOXIN [Concomitant]
     Indication: PRODUCT USED FOR UNKNOWN INDICATION
     Dates: start: 20130725
  4. PANTOPRAZOL [Concomitant]
     Indication: PRODUCT USED FOR UNKNOWN INDICATION
     Dates: start: 201305
  5. L-THYROXINE [Concomitant]
     Indication: PRODUCT USED FOR UNKNOWN INDICATION
     Dates: start: 201305
  6. SAROTEN [Concomitant]
     Indication: PRODUCT USED FOR UNKNOWN INDICATION
     Dates: start: 20130725
  7. METOPROLOL [Concomitant]
     Indication: PRODUCT USED FOR UNKNOWN INDICATION
  8. LISINOPRIL [Concomitant]
     Indication: PRODUCT USED FOR UNKNOWN INDICATION
  9. FENTANYL [Concomitant]
     Indication: PRODUCT USED FOR UNKNOWN INDICATION
  10. STANGYL [Concomitant]
     Indication: PRODUCT USED FOR UNKNOWN INDICATION

REACTIONS (10)
  - Pyloric stenosis [Recovered/Resolved with Sequelae]
  - Sepsis [Recovered/Resolved with Sequelae]
  - Impaired healing [Recovered/Resolved]
  - Abscess [Recovered/Resolved]
  - Duodenal ulcer [Unknown]
  - Peritonitis [Recovered/Resolved]
  - Peritoneal adhesions [Recovered/Resolved]
  - Ascites [Recovered/Resolved]
  - Duodenitis [Unknown]
  - Gastrooesophageal reflux disease [Unknown]
